FAERS Safety Report 5516584-6 (Version None)
Quarter: 2007Q4

REPORT INFORMATION
  Report Type: 
  Country: None (occurrence: None)
  Receive Date: 20071114
  Receipt Date: 20071107
  Transmission Date: 20080405
  Serious: Yes (Other)
  Sender: FDA-Public Use
  Company Number: US-JNJFOC-20071103323

PATIENT
  Sex: Female
  Weight: 60.78 kg

DRUGS (1)
  1. LEVAQUIN [Suspect]
     Indication: SINUSITIS
     Route: 048

REACTIONS (4)
  - LETHARGY [None]
  - MUSCULAR WEAKNESS [None]
  - PAIN [None]
  - TENDONITIS [None]
